FAERS Safety Report 9726355 (Version 4)
Quarter: 2014Q2

REPORT INFORMATION
  Report Type: Spontaneous
  Country: AT (occurrence: AT)
  Receive Date: 20131203
  Receipt Date: 20140401
  Transmission Date: 20141212
  Serious: Yes (Death)
  Sender: FDA-Public Use
  Company Number: AT-CELGENEUS-009-21880-13113614

PATIENT
  Age: 65 Year
  Sex: Female
  Weight: 52 kg

DRUGS (5)
  1. REVLIMID [Suspect]
     Indication: CHRONIC LYMPHOCYTIC LEUKAEMIA
     Dosage: 5 MILLIGRAM
     Route: 048
     Dates: start: 20131105, end: 20131110
  2. PIPERACILLIN + TAZOBACTAM [Concomitant]
     Indication: INFECTION
     Route: 065
     Dates: start: 201311, end: 201311
  3. PANTOPRAZOL [Concomitant]
     Indication: DYSPEPSIA
     Dosage: 40 MILLIGRAM
     Route: 065
     Dates: start: 20131105
  4. L-THYROXIN [Concomitant]
     Indication: GOITRE
     Dosage: 75 MICROGRAM
     Route: 065
     Dates: start: 20131105
  5. ACYCLOVIR [Concomitant]
     Indication: HERPES SIMPLEX
     Dosage: 1600 MILLIGRAM
     Route: 065
     Dates: start: 20131105

REACTIONS (1)
  - Klebsiella sepsis [Fatal]
